FAERS Safety Report 7275342-5 (Version None)
Quarter: 2011Q1

REPORT INFORMATION
  Report Type: 
  Country: None (occurrence: None)
  Receive Date: 20110204
  Receipt Date: 20110127
  Transmission Date: 20110831
  Serious: Yes (Hospitalization, Other)
  Sender: FDA-Public Use
  Company Number: BR-ROCHE-756181

PATIENT
  Sex: Female

DRUGS (2)
  1. XENICAL [Suspect]
     Route: 065
     Dates: start: 20070101, end: 20080101
  2. SERTRALINE [Suspect]
     Route: 065
     Dates: end: 20101221

REACTIONS (8)
  - CONSTIPATION [None]
  - STEATORRHOEA [None]
  - METABOLIC DISORDER [None]
  - ANGIOPATHY [None]
  - THROMBOPHLEBITIS [None]
  - WEIGHT INCREASED [None]
  - PRURITUS [None]
  - ABDOMINAL DISTENSION [None]
